FAERS Safety Report 5724390-2 (Version None)
Quarter: 2008Q2

REPORT INFORMATION
  Report Type: 
  Country: None (occurrence: None)
  Receive Date: 20080429
  Receipt Date: 20080411
  Transmission Date: 20081010
  Serious: Yes (Other)
  Sender: FDA-Public Use
  Company Number: S08-GER-01529-01

PATIENT
  Age: 75 Year
  Sex: Female

DRUGS (16)
  1. ESCITALOPRAM [Suspect]
     Dosage: 30 MG QD;PO
     Route: 048
  2. LITHIUM CARBONATE [Suspect]
     Dosage: 225 QD;
  3. ENALAPRIL MALEATE [Suspect]
     Dosage: 10 MG, QD;
  4. ESIDRIX [Suspect]
     Dosage: 25 MG QD;
  5. VENLAFAXINE HCL [Suspect]
     Dosage: 75 MG QD;
     Dates: end: 20041204
  6. VENLAFAXINE HCL [Suspect]
     Dosage: 75 MG QD;
     Dates: start: 20050111, end: 20060116
  7. RYTHMONORM (PROPAFENONE HYDROCHLORIDE) [Concomitant]
  8. NORVASC [Concomitant]
  9. SORTIS (ATORVASTATIN) [Concomitant]
  10. RESTEX [Concomitant]
  11. POTASSIUM CHLORIDE [Concomitant]
  12. ACIMETHIN (METHIONINE) [Concomitant]
  13. CEBION (ASCORBIC ACID) [Concomitant]
  14. PANTOPRAZOLE SODIUM [Concomitant]
  15. NULYTELY [Concomitant]
  16. MARCUMAR [Concomitant]

REACTIONS (8)
  - ATAXIA [None]
  - BLOOD ALKALINE PHOSPHATASE INCREASED [None]
  - BLOOD SODIUM DECREASED [None]
  - CONSTIPATION [None]
  - DRUG INTERACTION [None]
  - FALL [None]
  - GAIT DISTURBANCE [None]
  - OVERDOSE [None]
